FAERS Safety Report 13095168 (Version 2)
Quarter: 2017Q1

REPORT INFORMATION
  Report Type: Spontaneous
  Country: US (occurrence: US)
  Receive Date: 20170107
  Receipt Date: 20170111
  Transmission Date: 20170428
  Serious: No
  Sender: FDA-Public Use
  Company Number: US-TEVA-724653ACC

PATIENT
  Sex: Female

DRUGS (12)
  1. LATANOPROST. [Concomitant]
     Active Substance: LATANOPROST
  2. CLONAZEPAM. [Concomitant]
     Active Substance: CLONAZEPAM
  3. COPAXONE [Suspect]
     Active Substance: GLATIRAMER ACETATE
     Indication: MULTIPLE SCLEROSIS
     Route: 058
     Dates: start: 20090123
  4. ESCITALOPRAM [Concomitant]
     Active Substance: ESCITALOPRAM OXALATE
  5. METFORMIN [Concomitant]
     Active Substance: METFORMIN HYDROCHLORIDE
  6. SERTRALINE [Concomitant]
     Active Substance: SERTRALINE HYDROCHLORIDE
  7. BISOPRL/HCTZ [Concomitant]
  8. DONEPEZIL. [Concomitant]
     Active Substance: DONEPEZIL
  9. BUPROPN HCL [Concomitant]
     Active Substance: BUPROPION HYDROCHLORIDE
  10. COPAXONE [Suspect]
     Active Substance: GLATIRAMER ACETATE
     Route: 058
     Dates: start: 2004
  11. DULOXETINE. [Concomitant]
     Active Substance: DULOXETINE
  12. SPIRIVA [Concomitant]
     Active Substance: TIOTROPIUM BROMIDE MONOHYDRATE

REACTIONS (2)
  - Hyperhidrosis [Unknown]
  - Feeling hot [Unknown]

NARRATIVE: CASE EVENT DATE: 2015
